FAERS Safety Report 23947688 (Version 2)
Quarter: 2025Q1

REPORT INFORMATION
  Report Type: Report from Study
  Country: US (occurrence: US)
  Receive Date: 20240606
  Receipt Date: 20250218
  Transmission Date: 20250408
  Serious: Yes (Other)
  Sender: MALLINCKRODT
  Company Number: US-MALLINCKRODT-MNK202403655

PATIENT
  Age: 44 Year
  Sex: Female

DRUGS (5)
  1. CORTICOTROPIN [Suspect]
     Active Substance: CORTICOTROPIN
     Indication: Product used for unknown indication
     Dates: start: 20160902
  2. METHOTREXATE [Concomitant]
     Active Substance: METHOTREXATE
  3. METHOTREXATE [Concomitant]
     Active Substance: METHOTREXATE
  4. SIMPONI [Concomitant]
     Active Substance: GOLIMUMAB
     Indication: Rheumatoid arthritis
  5. RINVOQ [Concomitant]
     Active Substance: UPADACITINIB

REACTIONS (1)
  - Diabetes mellitus [Not Recovered/Not Resolved]
